FAERS Safety Report 25775658 (Version 2)
Quarter: 2025Q4

REPORT INFORMATION
  Report Type: Spontaneous
  Country: US (occurrence: US)
  Receive Date: 20250909
  Receipt Date: 20251203
  Transmission Date: 20260118
  Serious: Yes (Hospitalization, Other)
  Sender: BRISTOL-MYERS SQUIBB COMPANY
  Company Number: US-BRISTOL-MYERS SQUIBB COMPANY-2025-122600

PATIENT
  Age: 65 Year
  Sex: Female

DRUGS (2)
  1. POMALYST [Suspect]
     Active Substance: POMALIDOMIDE
     Indication: Plasma cell myeloma
     Dosage: FREQUENCY: TAKE 1 CAPSULE BY MOUTH 1 TIME?A DAY FOR 14 DAYS ON THEN 14 DAYS OFF.
     Route: 048
     Dates: start: 202504
  2. POMALYST [Suspect]
     Active Substance: POMALIDOMIDE
     Dosage: 7 DAYS ON 21 DAYS OFF ON 28 DAYS CYCLE
     Dates: start: 2025

REACTIONS (2)
  - Cancer pain [Unknown]
  - Myelosuppression [Unknown]

NARRATIVE: CASE EVENT DATE: 20250908
